FAERS Safety Report 4557402-2 (Version None)
Quarter: 2005Q1

REPORT INFORMATION
  Report Type: 
  Country: None (occurrence: None)
  Receive Date: 20050120
  Receipt Date: 20041221
  Transmission Date: 20050727
  Serious: Yes (Hospitalization, Other)
  Sender: FDA-Public Use
  Company Number: PHEH2004US13547

PATIENT
  Age: 42 Year
  Sex: Female
  Weight: 92 kg

DRUGS (9)
  1. ZOMETA [Suspect]
     Indication: METASTASES TO BONE
     Dosage: 4 MG, QMO
     Dates: start: 20020327, end: 20040212
  2. ACCUPRIL [Concomitant]
     Dosage: 5 MG, QD
  3. CELEXA [Concomitant]
  4. PREVACID [Concomitant]
  5. AMBIEN [Concomitant]
  6. PRAVACHOL [Concomitant]
  7. FEMARA [Concomitant]
     Dosage: 2.5 MG, QD
     Route: 048
  8. FEMARA [Concomitant]
     Dosage: 2.5 MG, QD
     Route: 048
  9. LEVOTHYROXINE [Concomitant]
     Indication: HYPOTHYROIDISM
     Dosage: 175 MEQ, QD

REACTIONS (13)
  - ACTINOMYCOSIS [None]
  - BRONCHITIS [None]
  - CARDIOMYOPATHY [None]
  - HYPERLIPIDAEMIA [None]
  - HYPOTHYROIDISM [None]
  - HYSTERECTOMY [None]
  - INFECTION [None]
  - MOUTH ULCERATION [None]
  - OSTEOMYELITIS [None]
  - OSTEONECROSIS [None]
  - PAIN IN JAW [None]
  - PULMONARY FIBROSIS [None]
  - TOOTH EXTRACTION [None]
